FAERS Safety Report 9123681 (Version 1)
Quarter: 2013Q1

REPORT INFORMATION
  Report Type: Spontaneous
  Country: US (occurrence: US)
  Receive Date: 20130227
  Receipt Date: 20130227
  Transmission Date: 20140127
  Serious: Yes (Death, Other)
  Sender: FDA-Public Use
  Company Number: US-BAYER-2013-022576

PATIENT
  Sex: Male

DRUGS (10)
  1. BAYER GENUINE ASPIRIN ORIGINAL STRENGTH [Suspect]
  2. ACIPHEX [Concomitant]
  3. FISH OIL [Concomitant]
  4. LASIX [Concomitant]
  5. GABAPENTIN [Concomitant]
  6. LEVEMIR [Concomitant]
  7. NOVOLOG [Concomitant]
  8. LIPITOR [Concomitant]
  9. LOSARTAN [Concomitant]
  10. METOPROLOL [Concomitant]

REACTIONS (3)
  - Myocardial infarction [Fatal]
  - Chest pain [None]
  - Chest discomfort [None]
